FAERS Safety Report 16368595 (Version 20)
Quarter: 2022Q2

REPORT INFORMATION
  Report Type: Report from Study
  Country: GB (occurrence: GB)
  Receive Date: 20190529
  Receipt Date: 20220429
  Transmission Date: 20220721
  Serious: Yes (Death, Hospitalization, Other)
  Sender: FDA-Public Use
  Company Number: GB-ROCHE-1663645

PATIENT
  Age: 50 Year
  Sex: Female

DRUGS (70)
  1. TRASTUZUMAB [Suspect]
     Active Substance: TRASTUZUMAB
     Indication: Breast cancer metastatic
     Dosage: 600 MILLIGRAM, TOTAL (LOADING DOSE (MODIFIED DOSE))(START18-MAY-2015)
     Route: 042
     Dates: end: 20150518
  2. TRASTUZUMAB [Suspect]
     Active Substance: TRASTUZUMAB
     Dosage: 600 MILLIGRAM, Q3W (1 CYCLE)/20-MAY-2015
     Route: 058
     Dates: end: 20150520
  3. TRASTUZUMAB [Suspect]
     Active Substance: TRASTUZUMAB
     Dosage: 450 MILLIGRAM, Q3W (MAINTENANCE DOSE)/11-JUN-2015
     Route: 042
  4. TRASTUZUMAB [Suspect]
     Active Substance: TRASTUZUMAB
     Dosage: 900 MILLIGRAM, Q3W (LOADING DOSE)/22-JUL-2015
     Route: 042
  5. TRASTUZUMAB [Suspect]
     Active Substance: TRASTUZUMAB
     Dosage: 675 MILLIGRAM, Q3W (MAINTENANCE DOSE)/12-AUG-2015
     Route: 042
  6. TRASTUZUMAB [Suspect]
     Active Substance: TRASTUZUMAB
     Dosage: 600 MILLIGRAM, Q3W (MAINTENANCE DOSE)/12-AUG-2015
     Route: 042
     Dates: end: 20171219
  7. TRASTUZUMAB [Suspect]
     Active Substance: TRASTUZUMAB
     Dosage: 525 MILLIGRAM, Q3W (MAINTENANCE DOSE)/09-JAN-2018
     Route: 042
  8. TRASTUZUMAB [Suspect]
     Active Substance: TRASTUZUMAB
     Dosage: 900 MILLIGRAM, Q3W (LOADING DOSE)/22-JUL-2015
     Route: 042
     Dates: end: 20150722
  9. TRASTUZUMAB [Suspect]
     Active Substance: TRASTUZUMAB
     Dosage: 675 MILLIGRAM, Q3W (MAINTENANCE DOSE)/12-AUG-2015
     Route: 042
     Dates: end: 20171219
  10. TRASTUZUMAB [Suspect]
     Active Substance: TRASTUZUMAB
     Dosage: 900 MILLIGRAM
     Route: 042
  11. CAPECITABINE [Suspect]
     Active Substance: CAPECITABINE
     Indication: Breast cancer metastatic
     Dosage: 1500 MG AND 2000 MG (START DATE:10-MAY-2016)
     Route: 048
     Dates: end: 20160531
  12. CAPECITABINE [Suspect]
     Active Substance: CAPECITABINE
     Dosage: 500 MILLIGRAM, Q3W/10-MAY-2016
     Route: 048
     Dates: end: 20160521
  13. LETROZOLE [Suspect]
     Active Substance: LETROZOLE
     Indication: Breast cancer metastatic
     Dosage: 2.5 MILLIGRAM, QD (START:24-NOV-2015)
     Route: 048
  14. DOCETAXEL [Suspect]
     Active Substance: DOCETAXEL
     Indication: Breast cancer metastatic
     Dosage: 132 MILLIGRAM, Q3W (START:19-MAY-2015 )
     Route: 042
     Dates: end: 20150708
  15. DOCETAXEL [Suspect]
     Active Substance: DOCETAXEL
     Dosage: 116 MILLIGRAM, Q3W/08-JUL-2015
     Route: 042
     Dates: end: 20150729
  16. DOCETAXEL [Suspect]
     Active Substance: DOCETAXEL
     Dosage: 95 MILLIGRAM, Q3W/26-AUG-2015
     Route: 042
     Dates: end: 20150915
  17. DOCETAXEL [Suspect]
     Active Substance: DOCETAXEL
     Dosage: ON 04/NOV/2015, SHE COMPLETED PLANNED CYCLES OF/22-JUL-2015
     Route: 042
     Dates: end: 20151104
  18. DOCETAXEL [Suspect]
     Active Substance: DOCETAXEL
     Dosage: 160 MG, Q3W(ON 04/NOV/2015,COMPLETED PLANNED CYCLES OF DOCETAXEL)/22-JUL-2015
     Route: 042
  19. DENOSUMAB [Suspect]
     Active Substance: DENOSUMAB
     Indication: HER2 positive breast cancer
     Dosage: 120 MILLIGRAM, MONTHLY/07-OCT-2013
     Route: 058
     Dates: end: 20160616
  20. DENOSUMAB [Suspect]
     Active Substance: DENOSUMAB
     Indication: Breast cancer metastatic
     Dosage: 120 MILLIGRAM, MONTHLY/30-APR-2015
     Route: 058
  21. DENOSUMAB [Suspect]
     Active Substance: DENOSUMAB
     Dosage: 120 MILLIGRAM, QD/01-JUL-2015
     Route: 042
     Dates: end: 20150701
  22. DENOSUMAB [Suspect]
     Active Substance: DENOSUMAB
     Dosage: 120 MILLIGRAM, MONTHLY/21-AUG-2015
     Route: 042
     Dates: end: 20150821
  23. DENOSUMAB [Suspect]
     Active Substance: DENOSUMAB
     Dosage: 120 MILLIGRAM, QD/12-SEP-2015
     Route: 042
     Dates: end: 20150912
  24. PERTUZUMAB [Suspect]
     Active Substance: PERTUZUMAB
     Indication: HER2 positive breast cancer
     Dosage: 840 MILLIGRAM, TOTAL(START:18-MAY-2015)
     Route: 042
  25. PERTUZUMAB [Suspect]
     Active Substance: PERTUZUMAB
     Indication: Breast cancer metastatic
     Dosage: 420 MILLIGRAM, Q3W (MAINTENANCE DOSE)/11-JUN-2015
     Route: 042
  26. PERTUZUMAB [Suspect]
     Active Substance: PERTUZUMAB
     Dosage: 840 MILLIGRAM, Q3W (LOADING DOSE)/22-JUL-2015
     Route: 042
     Dates: end: 20150722
  27. PERTUZUMAB [Suspect]
     Active Substance: PERTUZUMAB
     Dosage: 420 MILLIGRAM, Q3W (MAINTENANCE DOSE)/12-AUG-2015
     Route: 042
  28. PERTUZUMAB [Suspect]
     Active Substance: PERTUZUMAB
     Dosage: 420 MILLIGRAM, Q3W (MAINTENANCE DOSE, START DATE: 12-AUG-2015)
     Route: 042
  29. CYCLIZINE HYDROCHLORIDE [Concomitant]
     Active Substance: CYCLIZINE HYDROCHLORIDE
     Dosage: 150 MILLIGRAM, QD (START:21-MAY-2015)
     Route: 048
     Dates: end: 201602
  30. CYCLIZINE HYDROCHLORIDE [Concomitant]
     Active Substance: CYCLIZINE HYDROCHLORIDE
     Dosage: 50 MILLIGRAM,0.33 DAY/21-MAY-2015
     Route: 048
     Dates: end: 201602
  31. CYCLIZINE HYDROCHLORIDE [Concomitant]
     Active Substance: CYCLIZINE HYDROCHLORIDE
     Dosage: 150 MILLIGRAM 0.33 DAY/21-MAY-2015
     Route: 048
     Dates: end: 201602
  32. CYCLIZINE HYDROCHLORIDE [Concomitant]
     Active Substance: CYCLIZINE HYDROCHLORIDE
     Dosage: 150 MILLIGRAM,0.33 DAY/27-JUN-2016
     Route: 048
  33. CYCLIZINE HYDROCHLORIDE [Concomitant]
     Active Substance: CYCLIZINE HYDROCHLORIDE
     Dosage: 150 MILLIGRAM, QD/27-JUN-2016
     Route: 048
  34. CYCLIZINE HYDROCHLORIDE [Concomitant]
     Active Substance: CYCLIZINE HYDROCHLORIDE
     Dosage: 50 MILLIGRAM,0.33 DAY/27-JUN-2016
     Route: 048
  35. DOMPERIDONE [Concomitant]
     Active Substance: DOMPERIDONE
     Indication: Illness
     Dosage: 10 MILLIGRAM, 0.33 DAY(START:27-JUL-2015)
     Route: 048
     Dates: end: 20150729
  36. DOMPERIDONE [Concomitant]
     Active Substance: DOMPERIDONE
     Dosage: 10 MILLIGRAM, 0.33 DAY/09-JUN-2015
     Route: 048
     Dates: end: 20150611
  37. DOMPERIDONE [Concomitant]
     Active Substance: DOMPERIDONE
     Dosage: 10 MILLIGRAM, 0.33 DAY/12-SEP-2015
     Route: 048
     Dates: end: 20150914
  38. DOMPERIDONE [Concomitant]
     Active Substance: DOMPERIDONE
     Dosage: 10 MILLIGRAM/10-FEB-2016
     Route: 048
  39. DEXAMETHASONE [Concomitant]
     Active Substance: DEXAMETHASONE
     Indication: Prophylaxis
     Dosage: 2 MILLIGRAM, BID (4 TABLETS 2 A DAY)(START:10-JUN-2015 )
     Route: 048
     Dates: end: 20150612
  40. DEXAMETHASONE [Concomitant]
     Active Substance: DEXAMETHASONE
     Dosage: 4 TABLETS 2 A DAY/13-JUN-2015
     Route: 048
     Dates: end: 20150704
  41. DEXAMETHASONE [Concomitant]
     Active Substance: DEXAMETHASONE
     Dosage: 2 MILLIGRAM, BID (4 TABLETS 2 A DAY. 0.5 DAY)/27-JUL-2015
     Route: 048
     Dates: end: 20150729
  42. DEXAMETHASONE [Concomitant]
     Active Substance: DEXAMETHASONE
     Dosage: 29-JUL-2015
     Route: 048
  43. DEXAMETHASONE [Concomitant]
     Active Substance: DEXAMETHASONE
     Dosage: 2 MILLIGRAM, BID (4 TABLETS 2 A DAY, 0.5 DAY)/21-AUG-2015
     Route: 048
     Dates: end: 20150823
  44. DEXAMETHASONE [Concomitant]
     Active Substance: DEXAMETHASONE
     Dosage: 3 DAYS STARTING A DAY BEFORE CHEMOTHERAPY/06-AUG-2015
     Route: 048
  45. DEXAMETHASONE [Concomitant]
     Active Substance: DEXAMETHASONE
     Dosage: 2 MILLIGRAM, BID (4 TABLETS 2 A DAY 0.5 DAY)/12-SEP-2015
     Route: 048
     Dates: end: 20150914
  46. DEXAMETHASONE [Concomitant]
     Active Substance: DEXAMETHASONE
     Dosage: 8 MILLIGRAM, BID (4 TABLETS 2 A DAY, 0.5 DAY)/28-JUN-2016
     Route: 048
     Dates: end: 20160718
  47. DEXAMETHASONE [Concomitant]
     Active Substance: DEXAMETHASONE
     Dosage: 2 MILLIGRAM, Q3W/01-SEP-2015
     Route: 048
     Dates: end: 20150903
  48. DEXAMETHASONE [Concomitant]
     Active Substance: DEXAMETHASONE
     Dosage: 2 MILLIGRAM/01-SEP-2015
     Route: 048
     Dates: end: 20150903
  49. CHLORHEXIDINE GLUCONATE [Concomitant]
     Active Substance: CHLORHEXIDINE GLUCONATE
     Dosage: 20 MILLILITER, QD (START:08-JUL-2015)
     Route: 048
  50. CHLORHEXIDINE GLUCONATE [Concomitant]
     Active Substance: CHLORHEXIDINE GLUCONATE
     Dosage: 5 MILLILITER 0.25 DAY/08-JUL-2015
     Route: 048
  51. OXYCODONE [Concomitant]
     Active Substance: OXYCODONE
     Dosage: 10 MILLIGRAM, QD (START:21-MAY-2015)
     Route: 048
  52. OXYCODONE [Concomitant]
     Active Substance: OXYCODONE
     Dosage: 40 MILLIGRAM, QD/21-MAY-2015
     Route: 048
  53. OXYCODONE [Concomitant]
     Active Substance: OXYCODONE
     Dosage: 5 MILLIGRAM. 0.5 DAY/21-MAY-2015
     Route: 048
  54. OXYCODONE [Concomitant]
     Active Substance: OXYCODONE
     Dosage: 20 MILLIGRAM, 0.5 DAY/21-MAY-2015
     Route: 048
  55. OXYCODONE [Concomitant]
     Active Substance: OXYCODONE
     Dosage: 10 MILLIGRAM/21-MAY-2015
     Route: 048
  56. SODIUM CHLORIDE [Concomitant]
     Active Substance: SODIUM CHLORIDE
     Dosage: UNK (START:09-JUN-2015 )
     Route: 042
     Dates: end: 20150609
  57. HEPARIN [Concomitant]
     Active Substance: HEPARIN SODIUM
     Dosage: 500 IU IN 5 ML (START:27-MAY-2015)
     Route: 042
     Dates: end: 20150527
  58. 3M CAVILON ANTIFUNGAL [Concomitant]
     Active Substance: MICONAZOLE NITRATE
     Dosage: 0.5 DAYDURABLE BARRIER CREAM APPLIED DURING CHANGING PICC LINE DRESSINGS(28-OCT-2015)
     Route: 061
  59. ONDANSETRON [Concomitant]
     Active Substance: ONDANSETRON
     Dosage: 8 MILLIGRAM (START:29-JUL-2012)
     Route: 048
  60. ONDANSETRON [Concomitant]
     Active Substance: ONDANSETRON
     Dosage: 8 MILLIGRAM/26-AUG-2015
     Route: 048
  61. ONDANSETRON [Concomitant]
     Active Substance: ONDANSETRON
     Dosage: 8 MILLIGRAM/10-FEB-2016
     Route: 048
  62. LANSOPRAZOLE [Concomitant]
     Active Substance: LANSOPRAZOLE
     Dosage: 30 MILLIGRAM, QD (START:21-MAY-2015)
     Route: 048
  63. POTASSIUM BICARBONATE\POTASSIUM CHLORIDE [Concomitant]
     Active Substance: POTASSIUM BICARBONATE\POTASSIUM CHLORIDE
     Dosage: 4 DOSAGE FORM, QD (START:09-JUN-2015)
     Route: 048
     Dates: end: 20150611
  64. POTASSIUM BICARBONATE\POTASSIUM CHLORIDE [Concomitant]
     Active Substance: POTASSIUM BICARBONATE\POTASSIUM CHLORIDE
     Dosage: 2 DOSAGE FORM, 0.5 DAY/09-JUN-2015
     Route: 048
     Dates: end: 20150611
  65. LOPERAMIDE [Concomitant]
     Active Substance: LOPERAMIDE
     Indication: Prophylaxis
     Dosage: 1 OR 2 CAPSULES, MAXIMUM 8 TIMES A DAY(START:04-AUG-2015)
     Route: 048
     Dates: end: 20180323
  66. LOPERAMIDE [Concomitant]
     Active Substance: LOPERAMIDE
     Dosage: 2 MILLIGRAM/21-AUG-2015
     Route: 048
  67. BENDROFLUMETHIAZIDE [Concomitant]
     Active Substance: BENDROFLUMETHIAZIDE
     Dosage: 2.5 MILLIGRAM
     Route: 048
  68. BENDROFLUMETHIAZIDE [Concomitant]
     Active Substance: BENDROFLUMETHIAZIDE
     Dosage: UNK
     Route: 048
  69. NAPROXEN [Concomitant]
     Active Substance: NAPROXEN
     Dosage: UNK, PRN
     Route: 048
  70. NAPROXEN [Concomitant]
     Active Substance: NAPROXEN
     Dosage: UNK
     Route: 048

REACTIONS (47)
  - Metastases to meninges [Fatal]
  - Hypoglycaemia [Recovered/Resolved]
  - Erythema [Recovered/Resolved]
  - Neuropathy peripheral [Unknown]
  - Eye pruritus [Recovered/Resolved]
  - Illness [Recovering/Resolving]
  - Pruritus [Recovered/Resolved]
  - Vision blurred [Recovered/Resolved]
  - Breast tenderness [Unknown]
  - Catheter site inflammation [Recovered/Resolved]
  - Lethargy [Recovered/Resolved]
  - Hypocalcaemia [Recovered/Resolved]
  - Nausea [Recovering/Resolving]
  - Visual impairment [Recovered/Resolved]
  - Vomiting [Recovered/Resolved]
  - Pericardial effusion [Recovered/Resolved]
  - Impaired gastric emptying [Recovered/Resolved]
  - Dry eye [Recovered/Resolved]
  - Spinal fracture [Recovered/Resolved]
  - Rash erythematous [Recovered/Resolved]
  - Decreased appetite [Recovered/Resolved]
  - Claustrophobia [Recovered/Resolved]
  - Eye haemorrhage [Recovered/Resolved]
  - Fatigue [Recovered/Resolved]
  - Palpitations [Recovered/Resolved]
  - Rash [Recovered/Resolved]
  - Back pain [Not Recovered/Not Resolved]
  - Weight increased [Recovering/Resolving]
  - Anxiety [Recovered/Resolved]
  - Cushingoid [Recovered/Resolved]
  - Oedema peripheral [Recovered/Resolved]
  - Myalgia [Recovered/Resolved]
  - Chest discomfort [Recovered/Resolved]
  - Myelosuppression [Recovered/Resolved]
  - Dysphagia [Not Recovered/Not Resolved]
  - Ejection fraction decreased [Recovered/Resolved]
  - Urinary tract infection [Recovered/Resolved]
  - Nail dystrophy [Recovered/Resolved]
  - Bronchitis [Recovered/Resolved]
  - Hypokalaemia [Recovered/Resolved]
  - Cellulitis [Recovered/Resolved]
  - Skin exfoliation [Not Recovered/Not Resolved]
  - Onychomadesis [Recovered/Resolved]
  - Dyspepsia [Recovered/Resolved]
  - Neutropenic sepsis [Recovered/Resolved]
  - Dysgeusia [Recovered/Resolved]
  - Laryngitis [Unknown]

NARRATIVE: CASE EVENT DATE: 20150101
